FAERS Safety Report 9016769 (Version 1)
Quarter: 2013Q1

REPORT INFORMATION
  Report Type: Spontaneous
  Country: DE (occurrence: DE)
  Receive Date: 20130116
  Receipt Date: 20130116
  Transmission Date: 20140127
  Serious: Yes (Other)
  Sender: FDA-Public Use
  Company Number: DE-ASTRAZENECA-2013SE02214

PATIENT
  Sex: Female

DRUGS (2)
  1. BRILIQUE [Suspect]
     Route: 048
     Dates: start: 201212
  2. ASS [Concomitant]

REACTIONS (1)
  - Thrombosis in device [Unknown]
